FAERS Safety Report 9541132 (Version 1)
Quarter: 2013Q3

REPORT INFORMATION
  Report Type: Spontaneous
  Country: US (occurrence: US)
  Receive Date: 20130923
  Receipt Date: 20130923
  Transmission Date: 20140515
  Serious: Yes (Hospitalization)
  Sender: FDA-Public Use
  Company Number: US-BIOGENIDEC-2013BI090130

PATIENT
  Age: 47 Year
  Sex: Male

DRUGS (2)
  1. AVONEX [Suspect]
     Indication: MULTIPLE SCLEROSIS
     Route: 030
     Dates: start: 20030529, end: 20040505
  2. AVONEX [Suspect]
     Indication: MULTIPLE SCLEROSIS
     Route: 030
     Dates: start: 20040923, end: 20121128

REACTIONS (4)
  - Staphylococcal infection [Recovered/Resolved]
  - Mobility decreased [Not Recovered/Not Resolved]
  - General symptom [Recovered/Resolved]
  - Musculoskeletal disorder [Recovered/Resolved]
